FAERS Safety Report 5570378-4 (Version None)
Quarter: 2007Q4

REPORT INFORMATION
  Report Type: 
  Country: None (occurrence: None)
  Receive Date: 20071221
  Receipt Date: 20071212
  Transmission Date: 20080405
  Serious: Yes (Other)
  Sender: FDA-Public Use
  Company Number: PHBS2007JP20899

PATIENT
  Age: 53 Year
  Sex: Male

DRUGS (1)
  1. ZOMETA [Suspect]
     Indication: LUNG NEOPLASM MALIGNANT
     Dosage: UNK, UNK
     Route: 042
     Dates: start: 20071113

REACTIONS (4)
  - LOOSE TOOTH [None]
  - OSTEONECROSIS [None]
  - PERIODONTITIS [None]
  - TOOTH DISORDER [None]
